FAERS Safety Report 5035493-2 (Version None)
Quarter: 2006Q2

REPORT INFORMATION
  Report Type: 
  Country: None (occurrence: None)
  Receive Date: 20060622
  Receipt Date: 20060616
  Transmission Date: 20061013
  Serious: Yes (Other)
  Sender: FDA-Public Use
  Company Number: 2006-04-0737

PATIENT
  Age: 61 Year
  Sex: Male

DRUGS (1)
  1. INTRON A [Suspect]
     Indication: MALIGNANT MELANOMA
     Dosage: 20-16MIU/M^2* INTRAVENOUS
     Route: 042
     Dates: start: 20051128

REACTIONS (2)
  - BUNDLE BRANCH BLOCK LEFT [None]
  - SUPRAVENTRICULAR TACHYCARDIA [None]
